FAERS Safety Report 20858184 (Version 3)
Quarter: 2022Q2

REPORT INFORMATION
  Report Type: Spontaneous
  Country: NL (occurrence: NL)
  Receive Date: 20220521
  Receipt Date: 20220603
  Transmission Date: 20220721
  Serious: Yes (Death, Life-Threatening, Hospitalization, Other)
  Sender: FDA-Public Use
  Company Number: NL-NOVARTISPH-NVSC2022NL117533

PATIENT
  Age: 11 Year
  Sex: Female
  Weight: 54 kg

DRUGS (6)
  1. CANAKINUMAB [Suspect]
     Active Substance: CANAKINUMAB
     Indication: Product used for unknown indication
     Dosage: 150 MG, Q4W
     Route: 058
     Dates: start: 20211216, end: 20220113
  2. PREDNISONE [Concomitant]
     Active Substance: PREDNISONE
     Indication: Product used for unknown indication
     Dosage: 7.5 MG, QD
     Route: 048
  3. METHOTREXATE SODIUM [Concomitant]
     Active Substance: METHOTREXATE SODIUM
     Indication: Product used for unknown indication
     Dosage: 15 MG, QW
     Route: 048
  4. FOLIC ACID [Concomitant]
     Active Substance: FOLIC ACID
     Indication: Product used for unknown indication
     Dosage: UNK, QW
     Route: 048
  5. COTRIMOXAZOLE [Concomitant]
     Active Substance: SULFAMETHOXAZOLE\TRIMETHOPRIM
     Indication: Product used for unknown indication
     Dosage: UNK
     Route: 065
  6. ANAKINRA [Concomitant]
     Active Substance: ANAKINRA
     Indication: Product used for unknown indication
     Dosage: UNK
     Route: 065

REACTIONS (17)
  - Haemophagocytic lymphohistiocytosis [Fatal]
  - Brain death [Fatal]
  - Pneumonia [Fatal]
  - Oxygen saturation decreased [Fatal]
  - Encephalopathy [Fatal]
  - Loss of consciousness [Fatal]
  - Dystonic tremor [Fatal]
  - Brain oedema [Fatal]
  - Interstitial lung disease [Fatal]
  - Pyrexia [Fatal]
  - Lung diffusion disorder [Fatal]
  - Pneumocystis jirovecii pneumonia [Fatal]
  - Dyspnoea [Unknown]
  - Toxic skin eruption [Unknown]
  - Hypotension [Unknown]
  - Illness [Unknown]
  - Infection [Unknown]

NARRATIVE: CASE EVENT DATE: 20220113
